FAERS Safety Report 16485214 (Version 5)
Quarter: 2020Q1

REPORT INFORMATION
  Report Type: Spontaneous
  Country: US (occurrence: US)
  Receive Date: 20190627
  Receipt Date: 20200220
  Transmission Date: 20200409
  Serious: No
  Sender: FDA-Public Use
  Company Number: US-TAKEDA-2019TUS038891

PATIENT
  Sex: Female

DRUGS (10)
  1. ACYCLOVIR                          /00587301/ [Concomitant]
     Active Substance: ACYCLOVIR
     Dosage: UNK
     Route: 065
  2. NINLARO [Suspect]
     Active Substance: IXAZOMIB CITRATE
     Indication: PLASMA CELL MYELOMA IN REMISSION
     Dosage: 4 MILLIGRAM
     Route: 048
  3. ZOLEDRONIC ACID. [Concomitant]
     Active Substance: ZOLEDRONIC ACID
     Dosage: UNK
     Route: 065
  4. VITAMIN D3 [Concomitant]
     Active Substance: CHOLECALCIFEROL
     Dosage: UNK
     Route: 065
  5. REVLIMID [Suspect]
     Active Substance: LENALIDOMIDE
     Indication: PLASMA CELL MYELOMA IN REMISSION
     Dosage: UNK
     Route: 065
  6. CALCIUM+VIT D                      /00944201/ [Concomitant]
     Active Substance: CALCIUM CARBONATE\CHOLECALCIFEROL
     Dosage: UNK
     Route: 065
  7. PROMETHAZINE [Concomitant]
     Active Substance: PROMETHAZINE HYDROCHLORIDE
     Dosage: UNK
     Route: 065
  8. MELATONIN [Concomitant]
     Active Substance: MELATONIN
     Dosage: UNK
     Route: 065
  9. AMLODIPINE [Concomitant]
     Active Substance: AMLODIPINE BESYLATE
     Dosage: UNK
     Route: 065
  10. CALCIUM [Concomitant]
     Active Substance: CALCIUM
     Dosage: UNK
     Route: 065

REACTIONS (6)
  - Off label use [Unknown]
  - Skin discolouration [Unknown]
  - Diarrhoea [Unknown]
  - Vomiting [Unknown]
  - Headache [Unknown]
  - Malaise [Unknown]
